FAERS Safety Report 10250195 (Version 2)
Quarter: 2014Q3

REPORT INFORMATION
  Report Type: Spontaneous
  Country: US (occurrence: US)
  Receive Date: 20140620
  Receipt Date: 20140730
  Transmission Date: 20150326
  Serious: Yes (Other)
  Sender: FDA-Public Use
  Company Number: US-PFIZER INC-2014167748

PATIENT
  Age: 61 Year
  Sex: Female
  Weight: 58 kg

DRUGS (11)
  1. PROCARDIA [Suspect]
     Active Substance: NIFEDIPINE
     Indication: HYPERTENSION
     Dosage: 60 MG, DAILY
     Route: 048
  2. PROTONIX [Concomitant]
     Active Substance: PANTOPRAZOLE SODIUM
  3. IBUPROFEN. [Concomitant]
     Active Substance: IBUPROFEN
  4. DIAZEPAM. [Concomitant]
     Active Substance: DIAZEPAM
     Indication: ANXIETY
     Dosage: 0.5 MG ^ONE TO THREE TIMES A DAY^
  5. PROCARDIA [Suspect]
     Active Substance: NIFEDIPINE
     Indication: MITRAL VALVE PROLAPSE
     Dosage: 30 MG, DAILY
  6. PROPYLTHIOURACIL. [Concomitant]
     Active Substance: PROPYLTHIOURACIL
  7. VENTOLIN [Concomitant]
     Active Substance: ALBUTEROL SULFATE
  8. PROCARDIA [Suspect]
     Active Substance: NIFEDIPINE
     Indication: ATRIAL FIBRILLATION
  9. LORATADINE. [Concomitant]
     Active Substance: LORATADINE
  10. SIMVASTATIN. [Concomitant]
     Active Substance: SIMVASTATIN
  11. SYMBICORT [Concomitant]
     Active Substance: BUDESONIDE\FORMOTEROL FUMARATE DIHYDRATE

REACTIONS (3)
  - Dementia [Unknown]
  - Off label use [Unknown]
  - Drug ineffective [Unknown]
